FAERS Safety Report 5338615-9 (Version None)
Quarter: 2007Q2

REPORT INFORMATION
  Report Type: 
  Country: None (occurrence: None)
  Receive Date: 20070322
  Receipt Date: 20060905
  Transmission Date: 20071010
  Serious: Yes (Other)
  Sender: FDA-Public Use
  Company Number: 200613005BCC

PATIENT
  Age: 79 Year
  Sex: Male
  Weight: 70.3075 kg

DRUGS (8)
  1. ALEVE (CAPLET) [Suspect]
     Indication: PAIN
     Dosage: 440 MG, BID, ORAL
     Route: 048
     Dates: start: 20060630, end: 20060713
  2. CENTRUM SILVER [Concomitant]
  3. VITAMIN WORLD LUTEIN [Concomitant]
  4. KIRKLAND FISH OIL [Concomitant]
  5. VITAMIN WORLD CRANBERRY CONCENTRATE [Concomitant]
  6. VITAMIN E [Concomitant]
  7. ASCORBIC ACID [Concomitant]
  8. GARLIC [Concomitant]

REACTIONS (1)
  - BLOOD PRESSURE INCREASED [None]
